FAERS Safety Report 4568667-5 (Version None)
Quarter: 2005Q1

REPORT INFORMATION
  Report Type: 
  Country: None (occurrence: None)
  Receive Date: 20050202
  Receipt Date: 20040629
  Transmission Date: 20050727
  Serious: Yes (Disabling)
  Sender: FDA-Public Use
  Company Number: US-MERCK-0406USA02758

PATIENT
  Age: 75 Year
  Sex: Female

DRUGS (3)
  1. FOSAMAX [Suspect]
     Indication: OSTEOPOROSIS
     Route: 048
     Dates: start: 20040101
  2. LEVOXYL [Concomitant]
     Route: 065
  3. LESCOL [Concomitant]
     Route: 065

REACTIONS (6)
  - COUGH [None]
  - DIZZINESS [None]
  - MULTIPLE SCLEROSIS [None]
  - MUSCULAR DYSTROPHY [None]
  - NASOPHARYNGEAL DISORDER [None]
  - ORAL DISCHARGE [None]
